FAERS Safety Report 22736236 (Version 2)
Quarter: 2023Q4

REPORT INFORMATION
  Report Type: Report from Study
  Country: EG (occurrence: EG)
  Receive Date: 20230721
  Receipt Date: 20231212
  Transmission Date: 20240109
  Serious: Yes (Disabling, Other)
  Sender: FDA-Public Use
  Company Number: EG-002147023-NVSC2023EG160847

PATIENT
  Age: 21 Year
  Sex: Female

DRUGS (3)
  1. GILENYA [Suspect]
     Active Substance: FINGOLIMOD HYDROCHLORIDE
     Indication: Multiple sclerosis
     Dosage: 1 DOSAGE FORM, QD
     Route: 048
     Dates: start: 202107, end: 202307
  2. TIRALEPSY [Concomitant]
     Indication: Seizure
     Dosage: 1 DOSAGE FORM, BID (ONE TABLET IN THE MORNING AND  ONE TABLET IN THE EVENING)
     Route: 065
     Dates: start: 2021
  3. TIRALEPSY [Concomitant]
     Indication: Epilepsy

REACTIONS (8)
  - Multiple sclerosis [Recovering/Resolving]
  - Gait disturbance [Recovering/Resolving]
  - Bladder pain [Recovering/Resolving]
  - Decreased immune responsiveness [Unknown]
  - Seizure [Unknown]
  - Memory impairment [Unknown]
  - Central nervous system lesion [Unknown]
  - Intentional dose omission [Unknown]

NARRATIVE: CASE EVENT DATE: 20210701
